FAERS Safety Report 10235624 (Version 1)
Quarter: 2014Q2

REPORT INFORMATION
  Report Type: Spontaneous
  Country: CA (occurrence: None)
  Receive Date: 20140612
  Receipt Date: 20140612
  Transmission Date: 20141212
  Serious: Yes (Life-Threatening, Hospitalization, Disabling)
  Sender: FDA-Public Use
  Company Number: None

PATIENT
  Age: 22 Year
  Sex: Female

DRUGS (1)
  1. WELLBUTRIN [Suspect]
     Indication: MAJOR DEPRESSION
     Dosage: 150MG (ONE PILL) ONCE DAILY TAKEN BY MOUTH
     Route: 048
     Dates: start: 20140524, end: 20140607

REACTIONS (5)
  - Suicidal ideation [None]
  - Irritability [None]
  - Agitation [None]
  - Suicide attempt [None]
  - Quality of life decreased [None]
